FAERS Safety Report 8283498-0 (Version None)
Quarter: 2012Q2

REPORT INFORMATION
  Report Type: 
  Country: None (occurrence: None)
  Receive Date: 20120413
  Receipt Date: 20120411
  Transmission Date: 20120825
  Serious: Yes (Death, Hospitalization)
  Sender: FDA-Public Use
  Company Number: PHHY2012ES030721

PATIENT
  Age: 45 Year
  Sex: Male

DRUGS (14)
  1. IDARUBICIN HCL [Suspect]
     Indication: ACUTE MYELOID LEUKAEMIA
     Dosage: 12 MG/M2, PER DAY FOR 3 DAYS
  2. GEMTUZUMAB OZOGAMICIN [Concomitant]
     Dosage: 3 MG/M2, UNK
  3. MYCOPHENOLATE MOFETIL [Concomitant]
     Indication: GRAFT VERSUS HOST DISEASE
     Dosage: 2 G, PER DAY
     Dates: start: 20091201
  4. FLUDARABINE PHOSPHATE [Suspect]
     Indication: ACUTE MYELOID LEUKAEMIA
     Dosage: TWO CYCLES
  5. CYCLOSPORINE [Suspect]
     Indication: GRAFT VERSUS HOST DISEASE
     Dosage: 5 MG/KG, PER DAY
     Route: 048
  6. PREDNISOLONE [Concomitant]
     Indication: GRAFT VERSUS HOST DISEASE
     Dosage: 2 MG/KG, PER DAY
     Route: 048
  7. CYTARABINE [Suspect]
     Dosage: TWO MORE CYCLES
  8. FLUDARABINE PHOSPHATE [Suspect]
     Indication: BONE MARROW CONDITIONING REGIMEN
     Dosage: 160 MG/M2, FOR CONDITIONING
  9. SIROLIMUS [Concomitant]
     Indication: GRAFT VERSUS HOST DISEASE
     Dosage: 2 MG, PER DAY
  10. IDARUBICIN HCL [Suspect]
     Dosage: TWO CYCLES
  11. NEUPOGEN [Concomitant]
  12. CYTARABINE [Suspect]
     Indication: ACUTE MYELOID LEUKAEMIA
     Dosage: 200 MG/M2, PER DAY FOR 7 DAYS
     Dates: start: 20081201
  13. BUSULFAN [Suspect]
     Indication: BONE MARROW CONDITIONING REGIMEN
     Dosage: 12.8 MG/M2, UNK
  14. TACROLIMUS [Suspect]
     Indication: GRAFT VERSUS HOST DISEASE
     Dosage: 0.1 MG/KG, PER DAY

REACTIONS (11)
  - CEREBRAL ISCHAEMIA [None]
  - PROGRESSIVE MULTIFOCAL LEUKOENCEPHALOPATHY [None]
  - IIIRD NERVE DISORDER [None]
  - CENTRAL NERVOUS SYSTEM LESION [None]
  - CRANIAL NERVE DISORDER [None]
  - ASTHENIA [None]
  - MYOCLONUS [None]
  - DEATH [None]
  - PARESIS [None]
  - VIITH NERVE PARALYSIS [None]
  - NEUROLOGICAL DECOMPENSATION [None]
